FAERS Safety Report 17967385 (Version 1)
Quarter: 2020Q3

REPORT INFORMATION
  Report Type: Spontaneous
  Country: NL (occurrence: NL)
  Receive Date: 20200701
  Receipt Date: 20200701
  Transmission Date: 20201103
  Serious: Yes (Other)
  Sender: FDA-Public Use
  Company Number: NL-TEVA-2020-NL-1792937

PATIENT
  Sex: Female
  Weight: 85 kg

DRUGS (4)
  1. AMILORIDE/HYDROCHLOORTHIAZIDE [Concomitant]
     Active Substance: AMILORIDE HYDROCHLORIDE\HYDROCHLOROTHIAZIDE
     Dosage: 1 DF, 2.5/25 MG ,THERAPY START  DATE : ASKU ,THERAPY END DATE : ASKU
  2. NITROFURANTOINE [Suspect]
     Active Substance: NITROFURANTOIN
     Indication: PROPHYLAXIS URINARY TRACT INFECTION
     Dosage: 100MG,THERAPY END DATE : ASKU
     Dates: start: 20180801
  3. PREDNISON [Concomitant]
     Active Substance: PREDNISONE
     Dosage: 5 MG
  4. IMURAN [Concomitant]
     Active Substance: AZATHIOPRINE
     Dosage: 50 MG

REACTIONS (2)
  - Maternal exposure during pregnancy [Unknown]
  - Abortion spontaneous [Unknown]
